FAERS Safety Report 20215131 (Version 1)
Quarter: 2021Q4

REPORT INFORMATION
  Report Type: Spontaneous
  Country: US (occurrence: US)
  Receive Date: 20211222
  Receipt Date: 20211222
  Transmission Date: 20220303
  Serious: Yes (Other)
  Sender: FDA-Public Use
  Company Number: US-UNITED THERAPEUTICS-UNT-2021-024782

PATIENT
  Age: 55 Year
  Sex: Female
  Weight: 95.238 kg

DRUGS (3)
  1. TYVASO [Suspect]
     Active Substance: TREPROSTINIL
     Indication: Pulmonary arterial hypertension
     Dosage: UNK
     Dates: start: 20200203
  2. TYVASO [Suspect]
     Active Substance: TREPROSTINIL
     Dosage: 18-54 ?G, QID
  3. LETAIRIS [Concomitant]
     Active Substance: AMBRISENTAN
     Indication: Product used for unknown indication
     Dosage: UNK
     Route: 065

REACTIONS (11)
  - Neuropathy peripheral [Unknown]
  - Blood electrolytes decreased [Unknown]
  - Blood sodium decreased [Unknown]
  - Blood glucose fluctuation [Unknown]
  - Arthralgia [Recovering/Resolving]
  - Cardiac discomfort [Unknown]
  - Hot flush [Unknown]
  - Dizziness [Unknown]
  - Back pain [Unknown]
  - Panic attack [Unknown]
  - Muscle strain [Unknown]

NARRATIVE: CASE EVENT DATE: 20210901
